FAERS Safety Report 18994537 (Version 1)
Quarter: 2021Q1

REPORT INFORMATION
  Report Type: Spontaneous
  Country: US (occurrence: US)
  Receive Date: 20210311
  Receipt Date: 20210311
  Transmission Date: 20210420
  Serious: No
  Sender: FDA-Public Use
  Company Number: US-ORION CORPORATION ORION PHARMA-ENTC2020-0148

PATIENT
  Sex: Male

DRUGS (2)
  1. STALEVO [Suspect]
     Active Substance: CARBIDOPA\ENTACAPONE\LEVODOPA
     Indication: PRODUCT USED FOR UNKNOWN INDICATION
     Dosage: STRENGTH: 200 MG
     Route: 065
  2. INBRIJA [Concomitant]
     Active Substance: LEVODOPA
     Route: 065

REACTIONS (3)
  - Speech disorder [Unknown]
  - Product dose omission issue [Unknown]
  - Wrong product administered [Unknown]
